FAERS Safety Report 5255976-X (Version None)
Quarter: 2007Q1

REPORT INFORMATION
  Report Type: 
  Country: None (occurrence: None)
  Receive Date: 20070302
  Receipt Date: 20070302
  Transmission Date: 20070707
  Serious: Yes (Other)
  Sender: FDA-Public Use
  Company Number: None

PATIENT
  Sex: Male
  Weight: 73.0291 kg

DRUGS (10)
  1. ZOSYN [Suspect]
     Indication: CYSTIC FIBROSIS
     Dosage: 3.375GM   Q6H    IV DRIP ONE DOSE OF 10-DAY
     Route: 041
     Dates: start: 20070226, end: 20070226
  2. TOBRAMYCIN [Concomitant]
  3. TOBI [Concomitant]
  4. ALBUTEROL [Concomitant]
  5. ZITHROMAX [Concomitant]
  6. CREON [Concomitant]
  7. PULMOZYME [Concomitant]
  8. FLOVENT [Concomitant]
  9. ADEKS [Concomitant]
  10. HEPARIN + SALINE FLUSHING [Concomitant]

REACTIONS (5)
  - DIARRHOEA [None]
  - HEADACHE [None]
  - NAUSEA [None]
  - PALPITATIONS [None]
  - VOMITING [None]
